FAERS Safety Report 19377651 (Version 1)
Quarter: 2021Q2

REPORT INFORMATION
  Report Type: Spontaneous
  Country: US (occurrence: US)
  Receive Date: 20210604
  Receipt Date: 20210604
  Transmission Date: 20210717
  Serious: No
  Sender: FDA-Public Use
  Company Number: US-XTTRIUM LABORATORIES, INC-2112377

PATIENT
  Age: 50 Year
  Sex: Male
  Weight: 142.27 kg

DRUGS (20)
  1. CHLORHEXIDINE GLUCONATE. [Suspect]
     Active Substance: CHLORHEXIDINE GLUCONATE
     Indication: TOOTH EXTRACTION
     Route: 048
     Dates: start: 20210423, end: 20210427
  2. NORCO [Suspect]
     Active Substance: ACETAMINOPHEN\HYDROCODONE BITARTRATE
     Route: 048
  3. LISINOPRIL. [Suspect]
     Active Substance: LISINOPRIL
     Route: 048
  4. NITROFURANTOIN. [Suspect]
     Active Substance: NITROFURANTOIN
     Route: 048
  5. MAGNESIUM SULFATE. [Suspect]
     Active Substance: MAGNESIUM SULFATE
  6. IBUPROFEN. [Concomitant]
     Active Substance: IBUPROFEN
     Route: 048
  7. PREDNISONE. [Suspect]
     Active Substance: PREDNISONE
     Route: 048
  8. ANUSOL HC [Concomitant]
     Active Substance: HYDROCORTISONE
     Route: 054
  9. WARFARIN SODIUM. [Suspect]
     Active Substance: WARFARIN SODIUM
     Route: 048
  10. AMOXICILLAN [Suspect]
     Active Substance: AMOXICILLIN
  11. BENZHYDROCODONE AND ACETAMINOPHEN [Interacting]
     Active Substance: ACETAMINOPHEN\BENZHYDROCODONE HYDROCHLORIDE
     Route: 048
     Dates: start: 20210427
  12. TIZANIDINE. [Suspect]
     Active Substance: TIZANIDINE
     Route: 048
  13. ULTRACET [Suspect]
     Active Substance: ACETAMINOPHEN\TRAMADOL HYDROCHLORIDE
     Route: 048
  14. HYDROXYUREA. [Suspect]
     Active Substance: HYDROXYUREA
     Route: 048
  15. NEXIUM [Suspect]
     Active Substance: ESOMEPRAZOLE MAGNESIUM
     Route: 048
  16. NAPROXEN. [Suspect]
     Active Substance: NAPROXEN
     Route: 048
  17. HYDROCHLOROTHIAZIDE. [Suspect]
     Active Substance: HYDROCHLOROTHIAZIDE
     Route: 048
  18. DULCOLAX LAXATIVE [Concomitant]
     Active Substance: BISACODYL
     Route: 048
  19. PENICILLIN V POTASIUM [Interacting]
     Active Substance: PENICILLIN V POTASSIUM
     Route: 048
     Dates: start: 20210427
  20. LOSARTAN. [Suspect]
     Active Substance: LOSARTAN
     Route: 048

REACTIONS (2)
  - Oral infection [Unknown]
  - Tooth abscess [Unknown]

NARRATIVE: CASE EVENT DATE: 20210427
